FAERS Safety Report 6028058-7 (Version None)
Quarter: 2008Q4

REPORT INFORMATION
  Report Type: 
  Country: None (occurrence: None)
  Receive Date: 20081231
  Receipt Date: 20081216
  Transmission Date: 20090506
  Serious: Yes (Disabling, Other)
  Sender: FDA-Public Use
  Company Number: IDA-00166

PATIENT
  Age: 56 Year
  Sex: Male

DRUGS (4)
  1. PROPRANOLOL HCL [Suspect]
     Indication: MIGRAINE
     Dosage: 80 MG DAILY
     Route: 048
     Dates: start: 20080205, end: 20080218
  2. CAMCOLIT (LITHIUM CARBONATE) [Concomitant]
  3. DESLORATADINE [Concomitant]
  4. MIGRALEVE (BUCLIZINE HYDROCHLORIDE, CODEINE PHOSPHATE, PARACETAMOL) [Concomitant]

REACTIONS (2)
  - ALOPECIA [None]
  - HAIR COLOUR CHANGES [None]
